FAERS Safety Report 19087431 (Version 2)
Quarter: 2021Q3

REPORT INFORMATION
  Report Type: Spontaneous
  Country: US (occurrence: US)
  Receive Date: 20210402
  Receipt Date: 20210924
  Transmission Date: 20211014
  Serious: No
  Sender: FDA-Public Use
  Company Number: US-PFIZER INC-2020320526

PATIENT
  Age: 72 Year
  Sex: Female
  Weight: 90.72 kg

DRUGS (1)
  1. CELECOXIB. [Suspect]
     Active Substance: CELECOXIB
     Indication: OSTEOARTHRITIS
     Dosage: 200 MG, 1X/DAY
     Route: 048
     Dates: start: 20210309, end: 202103

REACTIONS (2)
  - Drug ineffective [Unknown]
  - Feeling abnormal [Unknown]
